FAERS Safety Report 10664762 (Version 1)
Quarter: 2014Q4

REPORT INFORMATION
  Report Type: Spontaneous
  Country: US (occurrence: None)
  Receive Date: 20141218
  Receipt Date: 20141218
  Transmission Date: 20150529
  Serious: Yes (Hospitalization)
  Sender: FDA-Public Use
  Company Number: None

PATIENT
  Age: 61 Year
  Sex: Female

DRUGS (5)
  1. TYLENOL [Concomitant]
     Active Substance: ACETAMINOPHEN
  2. ALEVE [Concomitant]
     Active Substance: NAPROXEN SODIUM
  3. VITAMIN C SUPPLEMENT [Concomitant]
  4. FENTANYL. [Concomitant]
     Active Substance: FENTANYL
  5. CAPECITABINE. [Suspect]
     Active Substance: CAPECITABINE
     Indication: BREAST CANCER
     Route: 048

REACTIONS (1)
  - Thrombosis [None]

NARRATIVE: CASE EVENT DATE: 20141210
